FAERS Safety Report 25967929 (Version 2)
Quarter: 2025Q4

REPORT INFORMATION
  Report Type: Report from Study
  Country: CA (occurrence: CA)
  Receive Date: 20251028
  Receipt Date: 20251119
  Transmission Date: 20260118
  Serious: Yes (Hospitalization)
  Sender: SANOFI AVENTIS
  Company Number: CA-SA-2025SA152169

PATIENT
  Age: 17 Year
  Sex: Male
  Weight: 55 kg

DRUGS (7)
  1. DUPILUMAB [Suspect]
     Active Substance: DUPILUMAB
     Indication: Dermatitis atopic
     Dosage: 400 MG, 1X
     Route: 058
     Dates: start: 20241015, end: 20241015
  2. DUPILUMAB [Suspect]
     Active Substance: DUPILUMAB
     Dosage: 200 MG, QOW
     Route: 058
     Dates: start: 202410
  3. DUPILUMAB [Suspect]
     Active Substance: DUPILUMAB
     Dosage: 200 MG, QW
     Route: 058
     Dates: start: 20250822, end: 2025
  4. METHOTREXATE [Concomitant]
     Active Substance: METHOTREXATE
     Dosage: UNK
     Dates: start: 20250115
  5. PROTOPIC [Concomitant]
     Active Substance: TACROLIMUS
     Dosage: UNK
     Dates: start: 2022
  6. FLUOCINONIDE [Concomitant]
     Active Substance: FLUOCINONIDE
  7. BETADERM [Concomitant]
     Active Substance: BETAMETHASONE VALERATE

REACTIONS (4)
  - Malaise [Unknown]
  - Off label use [Unknown]
  - Mental disorder [Unknown]
  - Therapeutic response decreased [Unknown]

NARRATIVE: CASE EVENT DATE: 20250101
